FAERS Safety Report 5684673-1 (Version None)
Quarter: 2008Q1

REPORT INFORMATION
  Report Type: 
  Country: None (occurrence: None)
  Receive Date: 20080328
  Receipt Date: 20070530
  Transmission Date: 20080703
  Serious: Yes (Hospitalization)
  Sender: FDA-Public Use
  Company Number: US-BRISTOL-MYERS SQUIBB COMPANY-13797386

PATIENT
  Age: 55 Year
  Sex: Female
  Weight: 50 kg

DRUGS (19)
  1. ERBITUX [Suspect]
     Indication: COLON CANCER
     Route: 042
  2. BENADRYL [Concomitant]
     Route: 042
  3. ACETAMINOPHEN [Concomitant]
  4. LACTINEX [Concomitant]
  5. ARIXTRA [Concomitant]
  6. DILAUDID [Concomitant]
  7. LEXAPRO [Concomitant]
  8. LOPERAMIDE HCL [Concomitant]
  9. LORAZEPAM [Concomitant]
  10. LYRICA [Concomitant]
  11. RITALIN [Concomitant]
  12. AVASTIN [Concomitant]
  13. REGLAN [Concomitant]
  14. DESENEX [Concomitant]
  15. ZOFRAN [Concomitant]
  16. POTASSIUM ACETATE [Concomitant]
  17. PHENERGAN HCL [Concomitant]
  18. PROTONIX [Concomitant]
  19. SIMETHICONE [Concomitant]

REACTIONS (2)
  - DEHYDRATION [None]
  - DERMATITIS ACNEIFORM [None]
